FAERS Safety Report 6900778-9 (Version None)
Quarter: 2010Q3

REPORT INFORMATION
  Report Type: 
  Country: None (occurrence: None)
  Receive Date: 20100803
  Receipt Date: 20100726
  Transmission Date: 20110219
  Serious: Yes (Death, Hospitalization, Other)
  Sender: FDA-Public Use
  Company Number: DE-CUBIST-2010S1001026

PATIENT
  Age: 69 Year
  Sex: Male
  Weight: 96 kg

DRUGS (1)
  1. CUBICIN [Suspect]
     Indication: ENDOCARDITIS
     Route: 042
     Dates: start: 20100317, end: 20100408

REACTIONS (4)
  - HAEMOTHORAX [None]
  - MULTI-ORGAN FAILURE [None]
  - PYOTHORAX [None]
  - SEPSIS [None]
